FAERS Safety Report 7030944-6 (Version None)
Quarter: 2010Q4

REPORT INFORMATION
  Report Type: 
  Country: None (occurrence: None)
  Receive Date: 20101006
  Receipt Date: 20100928
  Transmission Date: 20110411
  Serious: Yes (Death)
  Sender: FDA-Public Use
  Company Number: GB-CUBIST-2010S1001187

PATIENT
  Age: 76 Year
  Sex: Female
  Weight: 70 kg

DRUGS (8)
  1. CUBICIN [Suspect]
     Indication: ENDOCARDITIS
     Route: 042
     Dates: start: 20100723, end: 20100803
  2. CUBICIN [Suspect]
     Indication: ENDOCARDITIS STAPHYLOCOCCAL
     Route: 042
     Dates: start: 20100723, end: 20100803
  3. CUBICIN [Suspect]
     Indication: CELLULITIS
     Route: 042
     Dates: start: 20100723, end: 20100803
  4. CUBICIN [Suspect]
     Route: 042
     Dates: start: 20100723, end: 20100803
  5. CUBICIN [Suspect]
     Route: 042
     Dates: start: 20100723, end: 20100803
  6. CUBICIN [Suspect]
     Route: 042
     Dates: start: 20100723, end: 20100803
  7. VANCOMYCIN [Concomitant]
     Indication: PRODUCT USED FOR UNKNOWN INDICATION
  8. LINEZOLID [Concomitant]
     Indication: PRODUCT USED FOR UNKNOWN INDICATION

REACTIONS (2)
  - ENDOCARDITIS STAPHYLOCOCCAL [None]
  - STAPHYLOCOCCAL SEPSIS [None]
